FAERS Safety Report 6623870-5 (Version None)
Quarter: 2010Q1

REPORT INFORMATION
  Report Type: 
  Country: None (occurrence: None)
  Receive Date: 20100304
  Receipt Date: 20100217
  Transmission Date: 20100710
  Serious: Yes (Death)
  Sender: FDA-Public Use
  Company Number: 008957

PATIENT
  Age: 51 Year
  Sex: Female

DRUGS (6)
  1. BUSULFEX [Suspect]
     Indication: STEM CELL TRANSPLANT
     Dosage: INTRAVENOUS
     Route: 042
     Dates: start: 20081028, end: 20081031
  2. CYCLOSPORINE [Suspect]
     Dates: end: 20081210
  3. VORICONAZOLE [Suspect]
  4. METHOTREXATE [Concomitant]
  5. CYCLOPHOSPHAMIDE [Concomitant]
  6. RITUXIMAB (RITUXIMAB) [Concomitant]

REACTIONS (5)
  - CHEMOTHERAPEUTIC DRUG LEVEL INCREASED [None]
  - DISEASE RECURRENCE [None]
  - GRAFT VERSUS HOST DISEASE [None]
  - MULTI-ORGAN FAILURE [None]
  - THROMBOTIC MICROANGIOPATHY [None]
